FAERS Safety Report 7811058 (Version 3)
Quarter: 2013Q3

REPORT INFORMATION
  Report Type: Report from Study
  Country: DE (occurrence: DE)
  Receive Date: 20110214
  Receipt Date: 20130719
  Transmission Date: 20140515
  Serious: Yes (Hospitalization)
  Sender: FDA-Public Use
  Company Number: DE-ROCHE-759102

PATIENT
  Age: 48 Year
  Sex: Female
  Weight: 83 kg

DRUGS (15)
  1. PEG-INTERFERON ALFA 2A [Suspect]
     Indication: CHRONIC HEPATITIS C
     Route: 058
  2. RIBAVIRIN [Suspect]
     Indication: CHRONIC HEPATITIS C
     Route: 048
     Dates: start: 20101028, end: 20101124
  3. RIBAVIRIN [Suspect]
     Route: 048
  4. CERTICAN [Concomitant]
     Route: 048
  5. PANTOPRAZOLE [Concomitant]
     Route: 048
  6. URSOFALK [Concomitant]
     Route: 048
  7. IDEOS [Concomitant]
     Route: 048
  8. BIFITERAL [Concomitant]
     Dosage: WHEN REQUIRED
     Route: 065
  9. SEMPERA [Concomitant]
     Route: 048
  10. L-POLAMIDON [Concomitant]
     Indication: DRUG WITHDRAWAL MAINTENANCE THERAPY
     Route: 048
  11. CIPRALEX [Concomitant]
     Route: 048
  12. BATRAFEN [Concomitant]
     Route: 065
  13. ARANESP [Concomitant]
     Route: 058
  14. NEUPOGEN [Concomitant]
     Dosage: IF REQUIRED AFTER CONSULTATION
     Route: 058
  15. VENLAFAXINE [Concomitant]
     Route: 048

REACTIONS (4)
  - Anaemia [Not Recovered/Not Resolved]
  - Haemolysis [Not Recovered/Not Resolved]
  - Pyrexia [Not Recovered/Not Resolved]
  - Infection [Not Recovered/Not Resolved]
